FAERS Safety Report 17266608 (Version 1)
Quarter: 2020Q1

REPORT INFORMATION
  Report Type: Spontaneous
  Country: LB (occurrence: LB)
  Receive Date: 20200114
  Receipt Date: 20200114
  Transmission Date: 20200409
  Serious: Yes (Other)
  Sender: FDA-Public Use
  Company Number: LB-ROCHE-2427138

PATIENT
  Sex: Female

DRUGS (12)
  1. VINCRISTINE [Suspect]
     Active Substance: VINCRISTINE
     Indication: DIFFUSE LARGE B-CELL LYMPHOMA
     Dosage: 7 CYCLES
     Route: 065
  2. MESNA. [Suspect]
     Active Substance: MESNA
     Indication: DIFFUSE LARGE B-CELL LYMPHOMA
     Dosage: 3 CYCLES (3RD CYCLE ONLY FOR 3 DAYS INSTEAD OF 5 BECAUSE PATIENT PROGRESSING)
     Route: 065
  3. PREDNISONE. [Suspect]
     Active Substance: PREDNISONE
     Indication: DIFFUSE LARGE B-CELL LYMPHOMA
     Dosage: 7 CYCLES
     Route: 065
  4. IFOSFAMIDE. [Suspect]
     Active Substance: IFOSFAMIDE
     Indication: DIFFUSE LARGE B-CELL LYMPHOMA
     Dosage: 3 CYCLES (3RD CYCLE ONLY FOR 3 DAYS INSTEAD OF 5 BECAUSE PATIENT PROGRESSING)
     Route: 065
  5. ENDOXAN [CYCLOPHOSPHAMIDE] [Suspect]
     Active Substance: CYCLOPHOSPHAMIDE
     Dosage: 5 ML BID FOR 5 DAYS AND STOP 2 DAYS
     Route: 065
  6. HOLOXAN [Suspect]
     Active Substance: IFOSFAMIDE
     Indication: DIFFUSE LARGE B-CELL LYMPHOMA
     Dosage: 3 CYCLES (3RD CYCLE ONLY FOR 3 DAYS INSTEAD OF 5 BECAUSE PATIENT PROGRESSING)
     Route: 065
  7. ETOPOSIDE. [Suspect]
     Active Substance: ETOPOSIDE
     Indication: DIFFUSE LARGE B-CELL LYMPHOMA
     Dosage: 3 CYCLES (3RD CYCLE ONLY FOR 3 DAYS INSTEAD OF 5 BECAUSE PATIENT PROGRESSING)
     Route: 065
  8. CISPLATIN. [Suspect]
     Active Substance: CISPLATIN
     Indication: DIFFUSE LARGE B-CELL LYMPHOMA
     Dosage: 3 CYCLES (3RD CYCLE ONLY FOR 3 DAYS INSTEAD OF 5 BECAUSE PATIENT PROGRESSING)
     Route: 065
  9. RITUXIMAB. [Suspect]
     Active Substance: RITUXIMAB
     Indication: DIFFUSE LARGE B-CELL LYMPHOMA
     Dosage: 7 CYCLES
     Route: 065
  10. RITUXIMAB. [Suspect]
     Active Substance: RITUXIMAB
     Dosage: 3 CYCLES (3RD CYCLE GIVEN ONLY FOR 3 DAYS INSTEAD OF 5 BECAUSE PATIENT IS PROGRESSING )
     Route: 065
  11. ENDOXAN [CYCLOPHOSPHAMIDE] [Suspect]
     Active Substance: CYCLOPHOSPHAMIDE
     Indication: DIFFUSE LARGE B-CELL LYMPHOMA
     Dosage: 7 CYCLES
     Route: 065
  12. DOXORUBICIN [Suspect]
     Active Substance: DOXORUBICIN
     Indication: DIFFUSE LARGE B-CELL LYMPHOMA
     Dosage: 7 CYCLES
     Route: 065

REACTIONS (3)
  - Neutrophil count increased [Unknown]
  - Haemoglobin decreased [Unknown]
  - White blood cell count increased [Unknown]
